FAERS Safety Report 6386211-7 (Version None)
Quarter: 2009Q3

REPORT INFORMATION
  Report Type: 
  Country: None (occurrence: None)
  Receive Date: 20090929
  Receipt Date: 20090213
  Transmission Date: 20100115
  Serious: Yes (Life-Threatening, Hospitalization)
  Sender: FDA-Public Use
  Company Number: LMI-2009-00012

PATIENT
  Age: 59 Year
  Sex: Male
  Weight: 133.8111 kg

DRUGS (1)
  1. DEFINITY [Suspect]
     Indication: ECHOCARDIOGRAM
     Dates: start: 20071204, end: 20071204

REACTIONS (5)
  - CARDIAC ARREST [None]
  - FLUSHING [None]
  - RESPIRATORY ARREST [None]
  - SHOCK [None]
  - SINUS TACHYCARDIA [None]
